FAERS Safety Report 7345260-2 (Version None)
Quarter: 2011Q1

REPORT INFORMATION
  Report Type: 
  Country: None (occurrence: None)
  Receive Date: 20110310
  Receipt Date: 20110302
  Transmission Date: 20110831
  Serious: Yes (Hospitalization)
  Sender: FDA-Public Use
  Company Number: CH-ELI_LILLY_AND_COMPANY-CH201103000878

PATIENT
  Sex: Female

DRUGS (3)
  1. LEPONEX [Concomitant]
  2. CITALOPRAM [Concomitant]
  3. ZYPREXA [Suspect]
     Dosage: UNK, UNKNOWN

REACTIONS (1)
  - WHITE BLOOD CELL COUNT DECREASED [None]
